FAERS Safety Report 23511405 (Version 3)
Quarter: 2024Q1

REPORT INFORMATION
  Report Type: Spontaneous
  Country: US (occurrence: US)
  Receive Date: 20240212
  Receipt Date: 20240312
  Transmission Date: 20240410
  Serious: No
  Sender: FDA-Public Use
  Company Number: US-BRISTOL-MYERS SQUIBB COMPANY-2024-021981

PATIENT
  Age: 81 Year
  Sex: Female

DRUGS (1)
  1. INREBIC [Suspect]
     Active Substance: FEDRATINIB HYDROCHLORIDE
     Indication: Product used for unknown indication
     Route: 048

REACTIONS (10)
  - Illness [Unknown]
  - Vomiting [Unknown]
  - Chills [Unknown]
  - Hot flush [Unknown]
  - Nightmare [Unknown]
  - Nausea [Unknown]
  - Drug ineffective [Unknown]
  - Abdominal pain upper [Unknown]
  - Dysphagia [Unknown]
  - Urinary tract infection [Unknown]

NARRATIVE: CASE EVENT DATE: 20240307
